FAERS Safety Report 7823029-X (Version None)
Quarter: 2011Q4

REPORT INFORMATION
  Report Type: 
  Country: None (occurrence: None)
  Receive Date: 20111018
  Receipt Date: 20101007
  Transmission Date: 20120403
  Serious: No
  Sender: FDA-Public Use
  Company Number: US-ASTRAZENECA-2010SE47629

PATIENT
  Age: 50 Year
  Sex: Male
  Weight: 124.3 kg

DRUGS (9)
  1. LISINOPRIL [Concomitant]
     Route: 048
     Dates: start: 20090101
  2. OMINARIS [Concomitant]
     Indication: MULTIPLE ALLERGIES
     Route: 045
     Dates: start: 20101005
  3. ALBUTEROL [Concomitant]
     Indication: CHRONIC OBSTRUCTIVE PULMONARY DISEASE
     Route: 055
  4. PRILOSEC [Concomitant]
     Indication: GASTROOESOPHAGEAL REFLUX DISEASE
     Route: 048
     Dates: start: 20090101
  5. TYLENOL-500 [Concomitant]
     Indication: HEADACHE
     Route: 048
     Dates: start: 20070101
  6. ZYRTEC [Concomitant]
     Indication: HYPERSENSITIVITY
     Dosage: DAILY
     Route: 048
     Dates: start: 20100401
  7. SYMBICORT [Suspect]
     Indication: CHRONIC OBSTRUCTIVE PULMONARY DISEASE
     Dosage: 160/4.5 MCG, ONE PUFF BID
     Route: 055
     Dates: start: 20101001
  8. TYLENOL-500 [Concomitant]
     Indication: BACK PAIN
     Route: 048
     Dates: start: 20070101
  9. LISINOPRIL [Concomitant]
     Indication: HYPERTENSION
     Route: 048
     Dates: start: 20090101

REACTIONS (4)
  - DYSPNOEA [None]
  - BACK PAIN [None]
  - HYPERSENSITIVITY [None]
  - DIZZINESS [None]
